FAERS Safety Report 4525148-2 (Version None)
Quarter: 2004Q4

REPORT INFORMATION
  Report Type: 
  Country: None (occurrence: None)
  Receive Date: 20041117
  Receipt Date: 20040110
  Transmission Date: 20050328
  Serious: Yes (Other)
  Sender: FDA-Public Use
  Company Number: 2004S1000152

PATIENT
  Sex: Male

DRUGS (2)
  1. CLOZAPINE [Suspect]
     Indication: SCHIZOPHRENIA
     Dosage: 600MG HS, ORAL
     Route: 048
     Dates: start: 20010701, end: 20040105
  2. BENZTROPINE MESYLATE [Concomitant]

REACTIONS (1)
  - LEUKOPENIA [None]
